FAERS Safety Report 18110241 (Version 2)
Quarter: 2020Q3

REPORT INFORMATION
  Report Type: Report from Study
  Country: NL (occurrence: NL)
  Receive Date: 20200804
  Receipt Date: 20200922
  Transmission Date: 20201103
  Serious: Yes (Hospitalization, Other)
  Sender: FDA-Public Use
  Company Number: NL-BRISTOL-MYERS SQUIBB COMPANY-BMS-2020-061069

PATIENT
  Age: 76 Year
  Sex: Male
  Weight: 66 kg

DRUGS (3)
  1. IPILIMUMAB [Suspect]
     Active Substance: IPILIMUMAB
     Indication: BLADDER CANCER
     Dosage: 70 MILLIGRAM, Q3WK
     Route: 042
     Dates: start: 20200701, end: 20200701
  2. CAPECITABINE. [Concomitant]
     Active Substance: CAPECITABINE
     Indication: CHEMOTHERAPY
     Dosage: 1450 MILLIGRAM
     Route: 065
     Dates: start: 20200701, end: 20200714
  3. NIVOLUMAB [Suspect]
     Active Substance: NIVOLUMAB
     Indication: BLADDER CANCER
     Dosage: 210 MILLIGRAM, Q3WK
     Route: 042
     Dates: start: 20200701, end: 20200701

REACTIONS (3)
  - Hyperthyroidism [Recovering/Resolving]
  - Diarrhoea [Recovered/Resolved]
  - Acute kidney injury [Recovering/Resolving]

NARRATIVE: CASE EVENT DATE: 20200725
